FAERS Safety Report 10075627 (Version 2)
Quarter: 2014Q2

REPORT INFORMATION
  Report Type: Spontaneous
  Country: US (occurrence: US)
  Receive Date: 20140414
  Receipt Date: 20140613
  Transmission Date: 20141212
  Serious: Yes (Other)
  Sender: FDA-Public Use
  Company Number: US-SA-2014SA045657

PATIENT
  Age: 57 Year
  Sex: Male
  Weight: 50 kg

DRUGS (5)
  1. FABRAZYME [Suspect]
     Indication: FABRY^S DISEASE
     Route: 042
     Dates: start: 20051208
  2. IBUPROFEN [Concomitant]
  3. TYLENOL [Concomitant]
  4. GABAPENTIN [Concomitant]
  5. SIMVASTATIN [Concomitant]

REACTIONS (1)
  - Renal failure chronic [Not Recovered/Not Resolved]
